FAERS Safety Report 7558563-3 (Version None)
Quarter: 2011Q2

REPORT INFORMATION
  Report Type: 
  Country: None (occurrence: None)
  Receive Date: 20110621
  Receipt Date: 20110609
  Transmission Date: 20111010
  Serious: Yes (Hospitalization)
  Sender: FDA-Public Use
  Company Number: ES-BIOGENIDEC-2011BI008993

PATIENT
  Age: 32 Year
  Sex: Female

DRUGS (6)
  1. LANSOPRAZOLE [Concomitant]
  2. ENOXAPARIN SODIUM [Concomitant]
     Route: 058
  3. ENANTYUM [Concomitant]
  4. NOLOTIL [Concomitant]
  5. CHONDROSULF [Concomitant]
  6. TYSABRI [Suspect]
     Indication: MULTIPLE SCLEROSIS
     Route: 042
     Dates: start: 20080212

REACTIONS (1)
  - CARTILAGE INJURY [None]
